FAERS Safety Report 7225555-3 (Version None)
Quarter: 2011Q1

REPORT INFORMATION
  Report Type: 
  Country: None (occurrence: None)
  Receive Date: 20110103
  Receipt Date: 20101216
  Transmission Date: 20110831
  Serious: Yes (Disabling, Other)
  Sender: FDA-Public Use
  Company Number: ACO_21023_2010

PATIENT
  Age: 68 Year
  Sex: Male
  Weight: 81.6 kg

DRUGS (2)
  1. AMPYRA [Suspect]
     Indication: GAIT DISTURBANCE
     Dosage: 10MG, BID
     Dates: start: 20101201
  2. AMPYRA [Suspect]
     Indication: GAIT DISTURBANCE
     Dosage: 10MG, BID
     Dates: start: 20100823, end: 20101205

REACTIONS (10)
  - COGNITIVE DISORDER [None]
  - FALL [None]
  - CONDITION AGGRAVATED [None]
  - MUSCULAR WEAKNESS [None]
  - MULTIPLE SCLEROSIS [None]
  - ABASIA [None]
  - COORDINATION ABNORMAL [None]
  - DRUG WITHDRAWAL SYNDROME [None]
  - DRUG DOSE OMISSION [None]
  - PARALYSIS [None]
